FAERS Safety Report 11989737 (Version 1)
Quarter: 2016Q1

REPORT INFORMATION
  Report Type: Spontaneous
  Country: US (occurrence: US)
  Receive Date: 20160202
  Receipt Date: 20160202
  Transmission Date: 20160526
  Serious: No
  Sender: FDA-Public Use
  Company Number: US-ABBVIE-15P-163-1442246-00

PATIENT
  Age: 41 Year
  Sex: Female
  Weight: 99.88 kg

DRUGS (19)
  1. CIMETIDINE [Concomitant]
     Active Substance: CIMETIDINE
     Indication: PRODUCT USED FOR UNKNOWN INDICATION
     Route: 048
     Dates: start: 20140814
  2. LORAZEPAM. [Concomitant]
     Active Substance: LORAZEPAM
     Indication: ANXIETY
     Dosage: 4 TO 6 HOURS AS NEEDED
     Route: 048
  3. CARISOPRODOL. [Concomitant]
     Active Substance: CARISOPRODOL
     Indication: BACK PAIN
     Route: 048
  4. LUPRON DEPOT [Suspect]
     Active Substance: LEUPROLIDE ACETATE
     Indication: PRODUCT USED FOR UNKNOWN INDICATION
     Route: 030
     Dates: start: 20150116
  5. DRONABINOL. [Concomitant]
     Active Substance: DRONABINOL
     Indication: PRODUCT USED FOR UNKNOWN INDICATION
     Dosage: AS NEEDED
     Route: 048
  6. ENALAPRIL MALEATE. [Concomitant]
     Active Substance: ENALAPRIL MALEATE
     Indication: PRODUCT USED FOR UNKNOWN INDICATION
     Route: 048
  7. FASLODEX [Concomitant]
     Active Substance: FULVESTRANT
     Indication: PRODUCT USED FOR UNKNOWN INDICATION
  8. CEPHALEXIN. [Concomitant]
     Active Substance: CEPHALEXIN
     Indication: PRODUCT USED FOR UNKNOWN INDICATION
     Route: 048
  9. AMLODIPINE BESYLATE. [Concomitant]
     Active Substance: AMLODIPINE BESYLATE
     Indication: PRODUCT USED FOR UNKNOWN INDICATION
     Route: 048
  10. BUPROPION HCL ER [Concomitant]
     Active Substance: BUPROPION HYDROCHLORIDE
     Indication: PRODUCT USED FOR UNKNOWN INDICATION
     Route: 048
  11. CLINDAMYCIN HYDROCHLORIDE. [Concomitant]
     Active Substance: CLINDAMYCIN HYDROCHLORIDE
     Indication: PRODUCT USED FOR UNKNOWN INDICATION
     Route: 048
     Dates: start: 20150218
  12. HYDROCODONE/ACETAMINOPHEN [Concomitant]
     Active Substance: ACETAMINOPHEN\HYDROCODONE
     Indication: PAIN
     Dosage: 10-325MG, AS NEEDED
     Route: 048
  13. ALDACTONE [Suspect]
     Active Substance: SPIRONOLACTONE
     Indication: OEDEMA PERIPHERAL
     Route: 048
  14. CALCIUM [Concomitant]
     Active Substance: CALCIUM
     Indication: MINERAL SUPPLEMENTATION
  15. FUROSEMIDE. [Concomitant]
     Active Substance: FUROSEMIDE
     Indication: PRODUCT USED FOR UNKNOWN INDICATION
     Dosage: AS NEEDED
     Route: 048
  16. DICYCLOMINE HCL [Concomitant]
     Active Substance: DICYCLOMINE HYDROCHLORIDE
     Indication: DYSPEPSIA
     Dosage: EVERY 4 TO 6 HOURS AS NEEDED
     Route: 048
  17. MORPHINE SULFATE. [Concomitant]
     Active Substance: MORPHINE SULFATE
     Indication: PRODUCT USED FOR UNKNOWN INDICATION
     Route: 048
  18. ZOLPIDEM TARTRATE. [Concomitant]
     Active Substance: ZOLPIDEM TARTRATE
     Indication: INSOMNIA
     Dosage: AT BEDTIME AS NEEDED
     Route: 048
  19. IBUPROFEN. [Concomitant]
     Active Substance: IBUPROFEN
     Indication: PRODUCT USED FOR UNKNOWN INDICATION
     Route: 048

REACTIONS (29)
  - Hyperlipidaemia [Unknown]
  - Lacrimation increased [Unknown]
  - Gastrooesophageal reflux disease [Unknown]
  - Dry skin [Unknown]
  - Asthenia [Unknown]
  - Hypoaesthesia [Unknown]
  - Hypocalcaemia [Unknown]
  - Initial insomnia [Unknown]
  - Rash [Unknown]
  - Hot flush [Unknown]
  - Weight increased [Unknown]
  - Disturbance in attention [Unknown]
  - Diabetes mellitus [Unknown]
  - Micturition urgency [Unknown]
  - Nausea [Unknown]
  - Dry mouth [Unknown]
  - Affect lability [Unknown]
  - Vitamin D deficiency [Unknown]
  - Hypertension [Unknown]
  - Pruritus [Unknown]
  - Headache [Unknown]
  - Paraesthesia [Unknown]
  - Dizziness [Unknown]
  - Libido decreased [Unknown]
  - Palpitations [Unknown]
  - Vulvovaginal dryness [Unknown]
  - Palmar-plantar erythrodysaesthesia syndrome [Unknown]
  - Dysgeusia [Unknown]
  - Amnesia [Unknown]

NARRATIVE: CASE EVENT DATE: 20150218
